FAERS Safety Report 17509061 (Version 1)
Quarter: 2020Q1

REPORT INFORMATION
  Report Type: Spontaneous
  Country: US (occurrence: US)
  Receive Date: 20200306
  Receipt Date: 20200306
  Transmission Date: 20200409
  Serious: Yes (Other)
  Sender: FDA-Public Use
  Company Number: None

PATIENT
  Age: 2 Year
  Weight: 13.5 kg

DRUGS (1)
  1. AMOXICILLIN. [Suspect]
     Active Substance: AMOXICILLIN
     Indication: UPPER RESPIRATORY TRACT INFECTION
     Dosage: ?          QUANTITY:8 ML;?
     Route: 048
     Dates: start: 20200219, end: 20200229

REACTIONS (3)
  - Insomnia [None]
  - Gait disturbance [None]
  - Aggression [None]

NARRATIVE: CASE EVENT DATE: 20200219
